FAERS Safety Report 9281234 (Version 1)
Quarter: 2013Q2

REPORT INFORMATION
  Report Type: Spontaneous
  Country: US (occurrence: US)
  Receive Date: 20130509
  Receipt Date: 20130509
  Transmission Date: 20140414
  Serious: Yes (Other)
  Sender: FDA-Public Use
  Company Number: US-ASTRAZENECA-2013SE30223

PATIENT
  Age: 63 Year
  Sex: Male
  Weight: 123.4 kg

DRUGS (3)
  1. ZESTRIL [Suspect]
     Dosage: UNKNOWN DOSE
     Route: 048
  2. HYDROCHLOROTHIAZIDE [Concomitant]
  3. DILTIAZEM [Concomitant]
     Dosage: 300 DAILY

REACTIONS (2)
  - Chest discomfort [Recovered/Resolved]
  - Lip swelling [Recovered/Resolved]
